FAERS Safety Report 7754863-2 (Version None)
Quarter: 2011Q3

REPORT INFORMATION
  Report Type: 
  Country: None (occurrence: None)
  Receive Date: 20110916
  Receipt Date: 20110907
  Transmission Date: 20111222
  Serious: No
  Sender: FDA-Public Use
  Company Number: US-BIOGENIDEC-2011BI034522

PATIENT
  Age: 41 Year
  Sex: Female

DRUGS (1)
  1. TYSABRI [Suspect]
     Indication: MULTIPLE SCLEROSIS
     Route: 042
     Dates: start: 20100921

REACTIONS (10)
  - ASTHENIA [None]
  - FALL [None]
  - DISTURBANCE IN ATTENTION [None]
  - SENSATION OF HEAVINESS [None]
  - DYSKINESIA [None]
  - HYPOAESTHESIA [None]
  - AMNESIA [None]
  - DIZZINESS [None]
  - DIARRHOEA [None]
  - HEADACHE [None]
